FAERS Safety Report 7290666-3 (Version None)
Quarter: 2011Q1

REPORT INFORMATION
  Report Type: 
  Country: None (occurrence: None)
  Receive Date: 20110214
  Receipt Date: 20110207
  Transmission Date: 20110831
  Serious: Yes (Hospitalization)
  Sender: FDA-Public Use
  Company Number: US-JNJFOC-20100802349

PATIENT
  Sex: Female
  Weight: 90.72 kg

DRUGS (24)
  1. PRILOSEC [Concomitant]
     Indication: GASTRIC DISORDER
     Route: 048
  2. FENTANYL-100 [Suspect]
     Route: 062
  3. XOPENEX [Concomitant]
     Indication: BRONCHITIS
     Route: 055
  4. NASONEX [Concomitant]
     Indication: MULTIPLE ALLERGIES
     Route: 065
  5. MAXALT-MLT [Concomitant]
     Indication: MIGRAINE
     Route: 048
  6. FENTANYL-100 [Suspect]
     Route: 062
  7. FENTANYL-100 [Suspect]
     Route: 062
  8. PHENERGAN [Concomitant]
     Indication: NAUSEA
     Route: 048
  9. RESTASIS [Concomitant]
     Indication: DRY EYE
     Route: 065
  10. FENTANYL-100 [Suspect]
     Indication: OSTEOARTHRITIS
     Dosage: NDC-0781-7113-55
     Route: 062
  11. FENTANYL-100 [Suspect]
     Route: 062
  12. LUNESTA [Concomitant]
     Indication: SLEEP DISORDER
     Route: 048
  13. CELEBREX [Concomitant]
     Indication: ARTHRALGIA
     Route: 048
  14. POTASSIUM CHLORIDE [Concomitant]
     Route: 048
  15. PERCOCET [Suspect]
     Indication: BREAKTHROUGH PAIN
     Route: 048
  16. LIDODERM [Concomitant]
     Indication: PAIN
     Route: 062
  17. UNKNOWN MEDICATION [Concomitant]
     Indication: BLOOD CHOLESTEROL INCREASED
     Route: 065
  18. CYMBALTA [Concomitant]
     Indication: DEPRESSION
     Route: 048
  19. FENTANYL-100 [Suspect]
     Indication: FIBROMYALGIA
     Dosage: NDC-0781-7113-55
     Route: 062
  20. XANAX [Concomitant]
     Indication: ANXIETY
     Route: 065
  21. XANAX [Concomitant]
     Indication: DEPRESSION
     Route: 065
  22. FLEXERIL [Concomitant]
     Indication: MUSCLE DISORDER
     Route: 048
  23. TRIAMTERENE [Concomitant]
     Indication: HYPERTENSION
     Route: 065
  24. LORTAB [Concomitant]
     Indication: BREAKTHROUGH PAIN
     Route: 065

REACTIONS (6)
  - GLUCOSE TOLERANCE IMPAIRED [None]
  - ABDOMINAL DISCOMFORT [None]
  - THERAPEUTIC RESPONSE DECREASED [None]
  - FEELING ABNORMAL [None]
  - PRODUCT QUALITY ISSUE [None]
  - OSTEOARTHRITIS [None]
